FAERS Safety Report 18043743 (Version 3)
Quarter: 2020Q3

REPORT INFORMATION
  Report Type: Spontaneous
  Country: DE (occurrence: DE)
  Receive Date: 20200720
  Receipt Date: 20200724
  Transmission Date: 20201103
  Serious: Yes (Death, Hospitalization, Other)
  Sender: FDA-Public Use
  Company Number: DE-AMGEN-DEUSP2020114393

PATIENT

DRUGS (6)
  1. BLINATUMOMAB [Suspect]
     Active Substance: BLINATUMOMAB
     Indication: B PRECURSOR TYPE ACUTE LEUKAEMIA
     Dosage: UNK UNK, QD
     Route: 042
  2. CYCLOPHOSPHAMIDE. [Concomitant]
     Active Substance: CYCLOPHOSPHAMIDE
  3. FLUDARABINE [Concomitant]
     Active Substance: FLUDARABINE PHOSPHATE
  4. TREOSULFAN [Concomitant]
     Active Substance: TREOSULFAN
  5. ETOPOSIDE. [Concomitant]
     Active Substance: ETOPOSIDE
  6. INOTUZUMAB OZOGAMICIN [Concomitant]
     Active Substance: INOTUZUMAB OZOGAMICIN
     Indication: ACUTE LYMPHOCYTIC LEUKAEMIA RECURRENT
     Dosage: UNK, QD
     Route: 042

REACTIONS (21)
  - Cytokine release syndrome [Unknown]
  - Neutropenia [Unknown]
  - Thrombocytopenia [Unknown]
  - Dysaesthesia [Unknown]
  - Death [Fatal]
  - Systemic mycosis [Fatal]
  - Seizure [Unknown]
  - Anaemia [Unknown]
  - Acute lymphocytic leukaemia recurrent [Fatal]
  - Leukaemic infiltration extramedullary [Unknown]
  - Tumour lysis syndrome [Unknown]
  - Infusion related reaction [Unknown]
  - Therapeutic product effect incomplete [Unknown]
  - Headache [Unknown]
  - Hepatic enzyme increased [Unknown]
  - Infection [Unknown]
  - Encephalopathy [Unknown]
  - Paraesthesia [Unknown]
  - Myelosuppression [Unknown]
  - Capillary leak syndrome [Unknown]
  - Pyrexia [Unknown]
